FAERS Safety Report 8114951-8 (Version None)
Quarter: 2012Q1

REPORT INFORMATION
  Report Type: 
  Country: None (occurrence: None)
  Receive Date: 20120206
  Receipt Date: 20120123
  Transmission Date: 20120608
  Serious: Yes (Life-Threatening, Hospitalization, Other)
  Sender: FDA-Public Use
  Company Number: DE-UCBSA-048402

PATIENT
  Age: 57 Year
  Sex: Male
  Weight: 98 kg

DRUGS (24)
  1. METOPROLOL SUCCINATE [Concomitant]
     Indication: CARDIAC FAILURE
     Route: 048
     Dates: start: 20080501
  2. VITAMIN B-12 [Concomitant]
     Route: 048
     Dates: start: 20110801
  3. PANTOPRAZOLE [Concomitant]
     Route: 048
     Dates: start: 20091101
  4. TOLPERISON [Concomitant]
     Indication: HEMIPARESIS
     Route: 048
     Dates: start: 20111001
  5. HYDROCHLOROTHIAZIDE [Concomitant]
     Indication: CARDIAC FAILURE
     Route: 048
     Dates: start: 20080601
  6. EZETIMIBE [Concomitant]
     Indication: HYPERCHOLESTEROLAEMIA
     Dosage: 10/20 MG ONE ON ONE DAY
     Route: 048
     Dates: start: 20080501
  7. EZETIMIBE [Concomitant]
     Indication: CORONARY ARTERY DISEASE
     Dosage: 10/20 MG ONE ON ONE DAY
     Route: 048
     Dates: start: 20080501
  8. FOLIC ACID [Concomitant]
     Route: 048
     Dates: start: 20110801
  9. XIPAMID [Concomitant]
     Indication: CARDIAC FAILURE
     Route: 048
     Dates: start: 20111001
  10. XIPAMID [Concomitant]
     Indication: CORONARY ARTERY DISEASE
     Route: 048
     Dates: start: 20111001
  11. FERROUS SULFATE TAB [Concomitant]
     Indication: ANAEMIA
     Route: 048
     Dates: start: 20091101
  12. TOLPERISON [Concomitant]
     Indication: MYALGIA
     Route: 048
     Dates: start: 20111001
  13. TAMSULOSIN HCL [Concomitant]
     Indication: BENIGN PROSTATIC HYPERPLASIA
     Route: 048
     Dates: start: 20110801
  14. TESTOVIRON DEPOT [Concomitant]
     Route: 030
     Dates: start: 20091101
  15. HUMALOG [Concomitant]
     Dosage: ACC. TO BLOOD SUGAR LEVEL, DAILY DOSE: APPROXIMATLEY 60 IU
     Route: 058
     Dates: start: 20111001
  16. HYDROCORTISONE [Concomitant]
     Dosage: 20-10-5 MG
     Route: 048
     Dates: start: 20091101
  17. KEPPRA [Suspect]
     Dosage: DOSE: UNKNOWN
     Dates: start: 20080101
  18. KEPPRA [Suspect]
     Indication: TONIC CONVULSION
     Route: 048
     Dates: start: 20110701, end: 20111201
  19. METOPROLOL SUCCINATE [Concomitant]
     Indication: CORONARY ARTERY DISEASE
     Route: 048
     Dates: start: 20080501
  20. HYDROCHLOROTHIAZIDE [Concomitant]
     Indication: CORONARY ARTERY DISEASE
     Route: 048
     Dates: start: 20080601
  21. ASPIRIN [Concomitant]
     Indication: CORONARY ARTERY DISEASE
     Route: 048
     Dates: start: 20080501
  22. LEVOTHYROXINE SODIUM [Concomitant]
     Indication: HYPOPITUITARISM
     Route: 048
     Dates: start: 20091001
  23. LANTUS [Concomitant]
     Indication: TYPE 2 DIABETES MELLITUS
     Route: 058
     Dates: start: 20091101
  24. ERGOCALCIFEROL [Concomitant]
     Indication: VITAMIN D DEFICIENCY
     Route: 048
     Dates: start: 20100501

REACTIONS (1)
  - HEPATIC ENCEPHALOPATHY [None]
